FAERS Safety Report 16631501 (Version 2)
Quarter: 2019Q3

REPORT INFORMATION
  Report Type: Spontaneous
  Country: CN (occurrence: CN)
  Receive Date: 20190725
  Receipt Date: 20190827
  Transmission Date: 20191004
  Serious: Yes (Hospitalization, Other)
  Sender: FDA-Public Use
  Company Number: CN-ELI_LILLY_AND_COMPANY-CN201907010040

PATIENT
  Age: 71 Year
  Sex: Female
  Weight: 57.5 kg

DRUGS (1)
  1. HUMULIN R [Suspect]
     Active Substance: INSULIN HUMAN
     Indication: DIABETES MELLITUS
     Dosage: 20 U, BID
     Route: 058
     Dates: start: 2004

REACTIONS (14)
  - Hypoacusis [Not Recovered/Not Resolved]
  - Blood glucose abnormal [Not Recovered/Not Resolved]
  - Lower limb fracture [Not Recovered/Not Resolved]
  - Platelet count decreased [Not Recovered/Not Resolved]
  - Fall [Not Recovered/Not Resolved]
  - Coma hepatic [Unknown]
  - Hepatic cirrhosis [Not Recovered/Not Resolved]
  - Hepatitis B [Unknown]
  - Hepatitis [Unknown]
  - Cataract [Not Recovered/Not Resolved]
  - Constipation [Unknown]
  - Blood albumin decreased [Unknown]
  - Hepatic encephalopathy [Unknown]
  - Cervix carcinoma [Unknown]
